FAERS Safety Report 18694258 (Version 4)
Quarter: 2022Q1

REPORT INFORMATION
  Report Type: Spontaneous
  Country: BR (occurrence: BR)
  Receive Date: 20210104
  Receipt Date: 20220314
  Transmission Date: 20220423
  Serious: Yes (Other)
  Sender: FDA-Public Use
  Company Number: NVSC2020BR346293

PATIENT
  Sex: Female

DRUGS (5)
  1. EXELON [Suspect]
     Active Substance: RIVASTIGMINE TARTRATE
     Indication: Product used for unknown indication
     Dosage: 4.6 MG, QD, PATCH 5 (CM2)
     Route: 062
     Dates: start: 20201217
  2. EXELON [Suspect]
     Active Substance: RIVASTIGMINE TARTRATE
     Dosage: 9.5 MG, QD, PATCH 10 (CM2)
     Route: 065
  3. EXELON [Suspect]
     Active Substance: RIVASTIGMINE TARTRATE
     Dosage: 13.3 MG, QD PATCH 15 (CM2) STARTED 20 DAYS
     Route: 065
  4. RIVOTRIL [Concomitant]
     Active Substance: CLONAZEPAM
     Indication: Product used for unknown indication
     Dosage: 0.5 MG
     Route: 065
  5. RIVOTRIL [Concomitant]
     Active Substance: CLONAZEPAM
     Dosage: 0.025 MG
     Route: 065

REACTIONS (2)
  - Dementia [Not Recovered/Not Resolved]
  - Product adhesion issue [Not Recovered/Not Resolved]
